FAERS Safety Report 14540052 (Version 2)
Quarter: 2018Q1

REPORT INFORMATION
  Report Type: Spontaneous
  Country: CA (occurrence: CA)
  Receive Date: 20180216
  Receipt Date: 20180306
  Transmission Date: 20180509
  Serious: Yes (Other)
  Sender: FDA-Public Use
  Company Number: CA-IPSEN BIOPHARMACEUTICALS, INC.-2018-02571

PATIENT
  Age: 57 Year
  Sex: Female
  Weight: 53 kg

DRUGS (24)
  1. ATIVAN [Concomitant]
     Active Substance: LORAZEPAM
     Route: 048
  2. PMS-GABAPENTIN [Concomitant]
     Active Substance: GABAPENTIN
     Dosage: 4 CAPSULES IN THE MORNING AND 2 CAPSULES AT BEDTIME
  3. LOMOTIL [Concomitant]
     Active Substance: ATROPINE SULFATE\DIPHENOXYLATE HYDROCHLORIDE
  4. SYNTHROID [Concomitant]
     Active Substance: LEVOTHYROXINE SODIUM
  5. ACT LEVETIRACETAM [Concomitant]
  6. GABAPENTIN. [Concomitant]
     Active Substance: GABAPENTIN
  7. ASPIRIN LOW DOSE [Concomitant]
     Active Substance: ASPIRIN
  8. VITAMIN D3 [Concomitant]
     Active Substance: CHOLECALCIFEROL
     Route: 048
  9. MAGNESIUM [Concomitant]
     Active Substance: MAGNESIUM
  10. APO-K ER [Concomitant]
     Route: 048
  11. TRAVEL [Concomitant]
  12. TEVA-ALENDRONATE [Concomitant]
     Active Substance: ALENDRONATE SODIUM
     Route: 048
  13. CALCIUM CARBONATE. [Concomitant]
     Active Substance: CALCIUM CARBONATE
     Route: 048
  14. ZOFRAN [Concomitant]
     Active Substance: ONDANSETRON HYDROCHLORIDE
     Dosage: IF NEEDED
  15. APO-ESCITALOPRAM [Concomitant]
     Active Substance: ESCITALOPRAM OXALATE
     Dosage: 0.5 TABLET
  16. SOMATULINE AUTOGEL [Suspect]
     Active Substance: LANREOTIDE ACETATE
     Indication: CARCINOID TUMOUR PULMONARY
     Dosage: 120 MG
     Route: 058
     Dates: start: 20180103
  17. ASA [Concomitant]
     Active Substance: ASPIRIN
  18. PANTOPRAZOLE [Concomitant]
     Active Substance: PANTOPRAZOLE
  19. TEVA-CLONIDINE [Concomitant]
     Route: 048
  20. SOMATULINE AUTOGEL [Suspect]
     Active Substance: LANREOTIDE ACETATE
     Indication: GASTROINTESTINAL DISORDER
  21. SOMATULINE AUTOGEL [Suspect]
     Active Substance: LANREOTIDE ACETATE
     Indication: OFF LABEL USE
  22. STATEX [Concomitant]
     Active Substance: MORPHINE SULFATE
     Indication: PAIN
     Dosage: ONE AND A HALF TABLETS EVERY FIVE HOURS AS NEEDED
  23. MEDICAL MARIJUANA [Concomitant]
     Active Substance: CANNABIS SATIVA SUBSP. INDICA TOP
  24. VITAMIN D [Concomitant]
     Active Substance: CHOLECALCIFEROL

REACTIONS (8)
  - Scar [Unknown]
  - Injection site pain [Unknown]
  - Terminal state [Unknown]
  - Injection site mass [Recovering/Resolving]
  - Off label use [Unknown]
  - Dry skin [Unknown]
  - Injection site bruising [Recovered/Resolved]
  - Erythema [Unknown]

NARRATIVE: CASE EVENT DATE: 2018
